FAERS Safety Report 8114455-2 (Version None)
Quarter: 2012Q1

REPORT INFORMATION
  Report Type: 
  Country: None (occurrence: None)
  Receive Date: 20120206
  Receipt Date: 20120125
  Transmission Date: 20120608
  Serious: No
  Sender: FDA-Public Use
  Company Number: US-BIOGENIDEC-2012BI002479

PATIENT
  Age: 53 Year
  Sex: Female

DRUGS (3)
  1. AVONEX [Suspect]
     Route: 030
     Dates: start: 20030101, end: 20120101
  2. AVONEX [Suspect]
     Indication: MULTIPLE SCLEROSIS
     Route: 030
     Dates: start: 19991101, end: 20030101
  3. MEDROL [Concomitant]
     Indication: MULTIPLE SCLEROSIS
     Dates: start: 20120101

REACTIONS (9)
  - INJECTION SITE PAIN [None]
  - ARTHRALGIA [None]
  - INJECTION SITE CELLULITIS [None]
  - MUSCULOSKELETAL STIFFNESS [None]
  - INJECTION SITE MASS [None]
  - INJECTION SITE REACTION [None]
  - JOINT SWELLING [None]
  - INJECTION SITE ERYTHEMA [None]
  - LOSS OF CONTROL OF LEGS [None]
